FAERS Safety Report 6762565-4 (Version None)
Quarter: 2010Q2

REPORT INFORMATION
  Report Type: 
  Country: None (occurrence: None)
  Receive Date: 20100609
  Receipt Date: 20100528
  Transmission Date: 20101027
  Serious: Yes (Other)
  Sender: FDA-Public Use
  Company Number: DE-PFIZER INC-2010067281

PATIENT
  Age: 48 Year
  Sex: Female
  Weight: 65 kg

DRUGS (1)
  1. LYRICA [Suspect]
     Dosage: 150 MG, UNK
     Route: 048
     Dates: start: 20100101, end: 20100101

REACTIONS (2)
  - MENORRHAGIA [None]
  - MENSTRUATION DELAYED [None]
